FAERS Safety Report 22138849 (Version 1)
Quarter: 2023Q1

REPORT INFORMATION
  Report Type: Spontaneous
  Country: US (occurrence: US)
  Receive Date: 20230327
  Receipt Date: 20230327
  Transmission Date: 20230417
  Serious: Yes (Other)
  Sender: FDA-Public Use
  Company Number: US-STRIDES ARCOLAB LIMITED-2023SP003240

PATIENT
  Sex: Female

DRUGS (4)
  1. COLCHICINE [Suspect]
     Active Substance: COLCHICINE
     Indication: Urticaria
     Dosage: UNK
     Route: 065
  2. BENADRYL [Suspect]
     Active Substance: DIPHENHYDRAMINE HYDROCHLORIDE
     Indication: Urticaria
     Dosage: UNK
     Route: 065
  3. CLARITIN [Suspect]
     Active Substance: LORATADINE
     Indication: Urticaria
     Dosage: UNK
     Route: 065
  4. COVID-19 vaccine [Concomitant]
     Indication: COVID-19 immunisation
     Dosage: UNK
     Route: 065

REACTIONS (2)
  - Treatment failure [Unknown]
  - Off label use [Unknown]
